FAERS Safety Report 7570898-7 (Version None)
Quarter: 2011Q2

REPORT INFORMATION
  Report Type: 
  Country: None (occurrence: None)
  Receive Date: 20110624
  Receipt Date: 20110616
  Transmission Date: 20111010
  Serious: Yes (Hospitalization)
  Sender: FDA-Public Use
  Company Number: FR-MPIJNJ-2011-01245

PATIENT

DRUGS (9)
  1. DEXAMETHASONE [Suspect]
     Indication: MULTIPLE MYELOMA
     Dosage: 20 MG, UNK
     Route: 065
     Dates: start: 20110308, end: 20110316
  2. REVLIMID [Suspect]
     Dosage: 20 MG, UNK
     Route: 065
     Dates: start: 20110408
  3. AUGMENTIN '125' [Concomitant]
     Indication: PYREXIA
  4. CIPROFLOXACIN HYDROCHLORIDE [Concomitant]
  5. VELCADE [Suspect]
     Dosage: 1 MG/M2, UNK
     Route: 065
     Dates: start: 20110408
  6. DEXAMETHASONE [Suspect]
     Dosage: 10 UNK, UNK
     Route: 065
     Dates: start: 20110408
  7. VELCADE [Suspect]
     Indication: MULTIPLE MYELOMA
     Dosage: 2.2 MG, CYCLIC
     Route: 065
     Dates: start: 20110308, end: 20110316
  8. REVLIMID [Suspect]
     Indication: MULTIPLE MYELOMA
     Dosage: 25 MG, UNK
     Route: 065
     Dates: start: 20110308, end: 20110317
  9. CEFIXIME [Concomitant]

REACTIONS (3)
  - SOMNOLENCE [None]
  - TACHYCARDIA [None]
  - DYSPNOEA [None]
